FAERS Safety Report 5669258-5 (Version None)
Quarter: 2008Q1

REPORT INFORMATION
  Report Type: 
  Country: None (occurrence: None)
  Receive Date: 20080317
  Receipt Date: 20080304
  Transmission Date: 20080703
  Serious: Yes (Other)
  Sender: FDA-Public Use
  Company Number: JP-ELI_LILLY_AND_COMPANY-JP200803002024

PATIENT
  Age: 17 Year
  Sex: Male

DRUGS (3)
  1. ZYPREXA [Suspect]
     Route: 048
  2. PAXIL [Concomitant]
     Route: 048
  3. LITHIUM CARBONATE [Concomitant]
     Route: 048

REACTIONS (1)
  - ANAPHYLACTOID SHOCK [None]
